FAERS Safety Report 12484704 (Version 1)
Quarter: 2016Q2

REPORT INFORMATION
  Report Type: Spontaneous
  Country: GB (occurrence: None)
  Receive Date: 20160620
  Receipt Date: 20160620
  Transmission Date: 20160815
  Serious: No
  Sender: FDA-Public Use
  Company Number: None

PATIENT
  Age: 66 Year
  Sex: Male
  Weight: 70.76 kg

DRUGS (5)
  1. IRBESARTAN. [Concomitant]
     Active Substance: IRBESARTAN
  2. MAXITROL [Suspect]
     Active Substance: DEXAMETHASONE\NEOMYCIN SULFATE\POLYMYXIN B SULFATE
     Indication: EYE INFECTION
     Dosage: FOUR TIMES A DAY INTO THE EYE
     Route: 031
  3. BISOPROLOL [Concomitant]
     Active Substance: BISOPROLOL
  4. MAXITROL [Suspect]
     Active Substance: DEXAMETHASONE\NEOMYCIN SULFATE\POLYMYXIN B SULFATE
     Indication: POST PROCEDURAL INFECTION
     Dosage: FOUR TIMES A DAY INTO THE EYE
     Route: 031
  5. MAXITROL [Suspect]
     Active Substance: DEXAMETHASONE\NEOMYCIN SULFATE\POLYMYXIN B SULFATE
     Indication: PROPHYLAXIS
     Dosage: FOUR TIMES A DAY INTO THE EYE
     Route: 031

REACTIONS (4)
  - Post procedural complication [None]
  - Discomfort [None]
  - Local swelling [None]
  - Salivary duct obstruction [None]

NARRATIVE: CASE EVENT DATE: 20160413
